FAERS Safety Report 18780397 (Version 1)
Quarter: 2021Q1

REPORT INFORMATION
  Report Type: Spontaneous
  Country: US (occurrence: US)
  Receive Date: 20210122
  Receipt Date: 20210122
  Transmission Date: 20210419
  Serious: No
  Sender: FDA-Public Use
  Company Number: None

PATIENT
  Age: 88 Year
  Sex: Female
  Weight: 47.25 kg

DRUGS (9)
  1. DOXEPIN 5MG [Concomitant]
  2. CEPHALEXIN. [Suspect]
     Active Substance: CEPHALEXIN
     Indication: URINARY TRACT INFECTION
     Dosage: ?          QUANTITY:15 TABLET(S);?
     Route: 048
     Dates: start: 20210117, end: 20210122
  3. RISPERIDONE 1 MG [Concomitant]
     Active Substance: RISPERIDONE
  4. ASCORBIC ACID 500MG MDV [Concomitant]
     Active Substance: ASCORBIC ACID
  5. SACCHAROMYCES BOULARDII (PROBIOTIC) [Concomitant]
  6. FLUOXETINE 5 MG [Concomitant]
  7. CASIRIVIMAB. [Suspect]
     Active Substance: CASIRIVIMAB
  8. IMDEVIMAB. [Suspect]
     Active Substance: IMDEVIMAB
  9. VITAMIN D3 3000 UT/DAY [Concomitant]

REACTIONS (6)
  - Confusional state [None]
  - Cough [None]
  - Mental disorder [None]
  - SARS-CoV-2 test positive [None]
  - Disorientation [None]
  - Hallucination [None]

NARRATIVE: CASE EVENT DATE: 20210122
